FAERS Safety Report 16150798 (Version 1)
Quarter: 2019Q2

REPORT INFORMATION
  Report Type: Spontaneous
  Country: US (occurrence: US)
  Receive Date: 20190228
  Receipt Date: 20190228
  Transmission Date: 20190711
  Serious: Yes (Hospitalization)
  Sender: FDA-Public Use
  Company Number: None

PATIENT
  Age: 59 Year
  Sex: Female

DRUGS (4)
  1. TACROLIMUS CAP 1MG [Suspect]
     Active Substance: TACROLIMUS
     Indication: LUNG TRANSPLANT
     Dates: start: 20190215
  2. LEVOTHYROXINE. [Concomitant]
     Active Substance: LEVOTHYROXINE
  3. LOPRESSOR [Concomitant]
     Active Substance: METOPROLOL TARTRATE
  4. GABAPENTIN. [Concomitant]
     Active Substance: GABAPENTIN

REACTIONS (1)
  - Blood pressure decreased [None]

NARRATIVE: CASE EVENT DATE: 20190225
